FAERS Safety Report 5038125-2 (Version None)
Quarter: 2006Q2

REPORT INFORMATION
  Report Type: 
  Country: None (occurrence: None)
  Receive Date: 20060622
  Receipt Date: 20060612
  Transmission Date: 20061013
  Serious: Yes (Life-Threatening, Hospitalization)
  Sender: FDA-Public Use
  Company Number: 2006046714

PATIENT
  Age: 82 Year
  Sex: Female

DRUGS (12)
  1. ZYVOX [Suspect]
     Indication: STAPHYLOCOCCAL INFECTION
     Dosage: 1200 MG (600 MG, 2 IN 1 D)
     Dates: start: 20060101
  2. RISEDRONATE       (RISEDRONIC ACID) [Concomitant]
  3. CYCLOSPORINE [Concomitant]
  4. AZATHIOPRINE [Concomitant]
  5. CO-CODAMOL           (CODEINE PHOSPHATE, PARACETAMOL) [Concomitant]
  6. FERROUS SULFATE TAB [Concomitant]
  7. PREDNISOLONE [Concomitant]
  8. PROPRANOLOL [Concomitant]
  9. FUROSEMIDE [Concomitant]
  10. URSODEOXYCHOLIC ACID [Concomitant]
  11. CALCICHEW-D3          (CALCIUM CARBONATE, COLECALCIFEROL) [Concomitant]
  12. RANITIDINE [Concomitant]

REACTIONS (3)
  - FALL [None]
  - PANCYTOPENIA [None]
  - SUBDURAL HAEMORRHAGE [None]
